FAERS Safety Report 21409658 (Version 1)
Quarter: 2022Q4

REPORT INFORMATION
  Report Type: Spontaneous
  Country: US (occurrence: None)
  Receive Date: 20221003
  Receipt Date: 20221003
  Transmission Date: 20230113
  Serious: No
  Sender: FDA-Public Use
  Company Number: None

PATIENT
  Age: 73 Year
  Sex: Female
  Weight: 58.97 kg

DRUGS (11)
  1. IBRANCE [Suspect]
     Active Substance: PALBOCICLIB
     Indication: Breast cancer metastatic
     Dosage: OTHER FREQUENCY : 3W,1WOFF;?
     Route: 048
  2. ALBUTEROL SULFATE [Concomitant]
  3. ELIQUIS [Concomitant]
  4. FASLODEX [Concomitant]
  5. FUROSEMIDE [Concomitant]
  6. METOPROLOL [Concomitant]
  7. TARTRATE [Concomitant]
  8. OXYCODONE [Concomitant]
  9. SPIRIVA RESPIMAT [Concomitant]
  10. SYMBICORT [Concomitant]
  11. VENTOLIN HFA [Concomitant]

REACTIONS (1)
  - Disease progression [None]
